FAERS Safety Report 24030643 (Version 1)
Quarter: 2024Q2

REPORT INFORMATION
  Report Type: Spontaneous
  Country: US (occurrence: US)
  Receive Date: 20240628
  Receipt Date: 20240628
  Transmission Date: 20240716
  Serious: Yes (Hospitalization)
  Sender: FDA-Public Use
  Company Number: US-MYLANLABS-2024M1057626

PATIENT
  Age: 54 Year
  Sex: Male

DRUGS (3)
  1. CARVEDILOL [Suspect]
     Active Substance: CARVEDILOL
     Indication: Product used for unknown indication
     Dosage: 365 DOSAGE FORM (365?TABLETS)
     Route: 065
  2. INSULIN GLARGINE [Suspect]
     Active Substance: INSULIN GLARGINE
     Indication: Diabetes mellitus
     Dosage: 3000 DOSAGE FORM (APPROXIMATELY 3000?UNITS; INSULIN GLARGINE PENS)
     Route: 065
  3. INSULIN GLARGINE [Suspect]
     Active Substance: INSULIN GLARGINE
     Indication: Product used for unknown indication

REACTIONS (7)
  - Unresponsive to stimuli [Recovering/Resolving]
  - Lethargy [Recovering/Resolving]
  - Hyperhidrosis [Recovering/Resolving]
  - Toxicity to various agents [Recovering/Resolving]
  - Bradycardia [Recovering/Resolving]
  - Hypoglycaemia [Recovering/Resolving]
  - Intentional overdose [Recovering/Resolving]
